FAERS Safety Report 23611540 (Version 2)
Quarter: 2024Q2

REPORT INFORMATION
  Report Type: Report from Study
  Country: US (occurrence: US)
  Receive Date: 20240308
  Receipt Date: 20240408
  Transmission Date: 20240716
  Serious: Yes (Death)
  Sender: FDA-Public Use
  Company Number: US-OTSUKA-2024_006193

PATIENT
  Age: 84 Year
  Sex: Female

DRUGS (9)
  1. DEXTROMETHORPHAN HYDROBROMIDE\QUINIDINE SULFATE [Suspect]
     Active Substance: DEXTROMETHORPHAN HYDROBROMIDE\QUINIDINE SULFATE
     Indication: Affect lability
     Dosage: 1 DF (20 MG-10 MG), BID (ONE CAPSULE EVERY 12 HOURS)
     Route: 065
     Dates: start: 20230314, end: 20230503
  2. METFORMIN [Concomitant]
     Active Substance: METFORMIN HYDROCHLORIDE
     Indication: Type 2 diabetes mellitus
     Dosage: 500 MG, QD
     Route: 065
     Dates: end: 20231126
  3. LASIX [Concomitant]
     Active Substance: FUROSEMIDE
     Indication: Cardiac failure congestive
     Dosage: 20 MG, QD
     Route: 065
     Dates: end: 20231126
  4. KCL [Concomitant]
     Active Substance: POTASSIUM CHLORIDE
     Indication: Hypokalaemia
     Dosage: 10 MEQ, QD
     Route: 065
     Dates: end: 20231126
  5. BUSPAR [Concomitant]
     Active Substance: BUSPIRONE HYDROCHLORIDE
     Indication: Generalised anxiety disorder
     Dosage: 15 MG, QD
     Route: 065
     Dates: end: 20231126
  6. ZOLOFT [Concomitant]
     Active Substance: SERTRALINE HYDROCHLORIDE
     Indication: Major depression
     Dosage: 50 MG, QD
     Route: 065
     Dates: end: 20231126
  7. ZOLOFT [Concomitant]
     Active Substance: SERTRALINE HYDROCHLORIDE
     Indication: Psychotic symptom
  8. SEROQUEL [Concomitant]
     Active Substance: QUETIAPINE FUMARATE
     Indication: Major depression
     Dosage: 50 MG, QD
     Route: 065
     Dates: end: 20231126
  9. SEROQUEL [Concomitant]
     Active Substance: QUETIAPINE FUMARATE
     Indication: Psychotic symptom

REACTIONS (2)
  - Death [Fatal]
  - Vomiting [Unknown]

NARRATIVE: CASE EVENT DATE: 20231123
